FAERS Safety Report 17082192 (Version 2)
Quarter: 2019Q4

REPORT INFORMATION
  Report Type: Report from Study
  Country: DE (occurrence: DE)
  Receive Date: 20191127
  Receipt Date: 20191217
  Transmission Date: 20200122
  Serious: Yes (Hospitalization)
  Sender: FDA-Public Use
  Company Number: PHHY2018DE181798

PATIENT
  Age: 37 Year
  Sex: Male

DRUGS (2)
  1. DEKRISTOL [Concomitant]
     Active Substance: CHOLECALCIFEROL
     Indication: VITAMIN D DEFICIENCY
     Dosage: 20000 MG, QW
     Route: 065
     Dates: start: 20171221
  2. GILENYA [Suspect]
     Active Substance: FINGOLIMOD HYDROCHLORIDE
     Indication: MULTIPLE SCLEROSIS
     Dosage: 0.5 MG, QD
     Route: 048
     Dates: start: 20161110

REACTIONS (8)
  - Aphasia [Recovered/Resolved with Sequelae]
  - Subdural haematoma [Unknown]
  - Disturbance in attention [Unknown]
  - Headache [Unknown]
  - Fear of falling [Unknown]
  - Seizure [Recovered/Resolved with Sequelae]
  - Fall [Recovered/Resolved with Sequelae]
  - Haemorrhage [Recovered/Resolved with Sequelae]

NARRATIVE: CASE EVENT DATE: 20181012
